FAERS Safety Report 17582715 (Version 1)
Quarter: 2020Q1

REPORT INFORMATION
  Report Type: Report from Study
  Country: US (occurrence: US)
  Receive Date: 20200325
  Receipt Date: 20200325
  Transmission Date: 20200409
  Serious: Yes (Other)
  Sender: FDA-Public Use
  Company Number: US-BIOGEN-2020BI00853089

PATIENT
  Sex: Female

DRUGS (1)
  1. TYSABRI [Suspect]
     Active Substance: NATALIZUMAB
     Indication: MULTIPLE SCLEROSIS
     Route: 041
     Dates: start: 20130111

REACTIONS (4)
  - Coronary artery occlusion [Recovered/Resolved]
  - Hepatic mass [Recovered/Resolved]
  - Cystitis [Not Recovered/Not Resolved]
  - Nasopharyngitis [Recovered/Resolved]
